FAERS Safety Report 5047798-X (Version None)
Quarter: 2006Q3

REPORT INFORMATION
  Report Type: 
  Country: None (occurrence: None)
  Receive Date: 20060705
  Receipt Date: 20060516
  Transmission Date: 20061208
  Serious: Yes (Hospitalization)
  Sender: FDA-Public Use
  Company Number: 06061783

PATIENT
  Age: 69 Year
  Sex: Male

DRUGS (8)
  1. AMIODARONE HYDROCHLORIDE [Suspect]
     Indication: ARRHYTHMIA
     Dosage: 200MG, QD, ORAL
     Route: 048
  2. ASPIRIN [Concomitant]
  3. LANSOPRAZOLE [Concomitant]
  4. LEVOTHYROXINE SODIUM [Concomitant]
  5. METHOCARBAMOL [Concomitant]
  6. METOPROLOL TARTRATE [Concomitant]
  7. OXYCODONE HCL [Concomitant]
  8. RISPERIDONE [Concomitant]

REACTIONS (5)
  - ASTHENIA [None]
  - COUGH [None]
  - DYSPNOEA [None]
  - PULMONARY ALVEOLAR HAEMORRHAGE [None]
  - WEIGHT DECREASED [None]
